FAERS Safety Report 16509003 (Version 2)
Quarter: 2019Q3

REPORT INFORMATION
  Report Type: Spontaneous
  Country: US (occurrence: US)
  Receive Date: 20190702
  Receipt Date: 20190712
  Transmission Date: 20191004
  Serious: Yes (Death)
  Sender: FDA-Public Use
  Company Number: US-ROCHE-2345823

PATIENT
  Sex: Female
  Weight: 42.68 kg

DRUGS (2)
  1. HEMLIBRA [Suspect]
     Active Substance: EMICIZUMAB-KXWH
     Indication: ACQUIRED HAEMOPHILIA
     Dosage: STRENGTH: 60 MG/0.4 ML
     Route: 058
     Dates: start: 20190207, end: 20190304
  2. HEMLIBRA [Suspect]
     Active Substance: EMICIZUMAB-KXWH
     Indication: OFF LABEL USE

REACTIONS (3)
  - Osteomyelitis [Fatal]
  - Intentional product use issue [Unknown]
  - Off label use [Unknown]
